FAERS Safety Report 12908141 (Version 15)
Quarter: 2017Q3

REPORT INFORMATION
  Report Type: Report from Study
  Country: MX (occurrence: MX)
  Receive Date: 20161103
  Receipt Date: 20170901
  Transmission Date: 20171127
  Serious: Yes (Other)
  Sender: FDA-Public Use
  Company Number: PHHY2016MX140152

PATIENT
  Age: 54 Year
  Sex: Female
  Weight: 70 kg

DRUGS (2)
  1. EUTHYROX [Concomitant]
     Active Substance: LEVOTHYROXINE SODIUM
     Indication: HYPOTHYROIDISM
     Dosage: 10 YEARS AGO
     Route: 048
  2. SANDOSTATIN LAR DEPOT [Suspect]
     Active Substance: OCTREOTIDE ACETATE
     Indication: NEUROENDOCRINE TUMOUR
     Dosage: 30 MG, QMO (MONTHLY)
     Route: 065
     Dates: start: 20160808

REACTIONS (37)
  - Syncope [Unknown]
  - Heart rate increased [Unknown]
  - Sneezing [Not Recovered/Not Resolved]
  - Gastrooesophageal reflux disease [Unknown]
  - Feeling abnormal [Unknown]
  - Pneumonitis [Unknown]
  - Pain in extremity [Unknown]
  - Product use in unapproved indication [Not Recovered/Not Resolved]
  - Feeling hot [Unknown]
  - Fear [Unknown]
  - Dizziness [Unknown]
  - Blood chromogranin A increased [Recovering/Resolving]
  - Eye haemorrhage [Unknown]
  - Depressed mood [Recovered/Resolved]
  - Nasal congestion [Unknown]
  - Dyspnoea [Unknown]
  - Pharyngitis [Unknown]
  - Speech disorder [Unknown]
  - Ocular hyperaemia [Not Recovered/Not Resolved]
  - Malignant neoplasm progression [Not Recovered/Not Resolved]
  - Influenza like illness [Not Recovered/Not Resolved]
  - Influenza [Unknown]
  - Insomnia [Unknown]
  - Ear pain [Unknown]
  - Headache [Not Recovered/Not Resolved]
  - Hot flush [Unknown]
  - Pain [Unknown]
  - Anxiety [Unknown]
  - Dysphonia [Unknown]
  - Anaemia [Unknown]
  - Cardiac valve disease [Unknown]
  - Metastases to heart [Unknown]
  - Agitation [Unknown]
  - Fatigue [Unknown]
  - Secretion discharge [Not Recovered/Not Resolved]
  - Peripheral swelling [Unknown]
  - Malaise [Unknown]

NARRATIVE: CASE EVENT DATE: 20160808
